FAERS Safety Report 16904458 (Version 1)
Quarter: 2019Q4

REPORT INFORMATION
  Report Type: Report from Study
  Country: KE (occurrence: KE)
  Receive Date: 20191010
  Receipt Date: 20191010
  Transmission Date: 20200122
  Serious: Yes (Hospitalization)
  Sender: FDA-Public Use
  Company Number: KE-PFIZER INC-2019433587

PATIENT
  Sex: Female

DRUGS (1)
  1. BOSULIF [Suspect]
     Active Substance: BOSUTINIB MONOHYDRATE
     Indication: CHRONIC MYELOID LEUKAEMIA
     Dosage: 500 MG (5 X 100MG TABLETS), UNK

REACTIONS (4)
  - Diarrhoea [Unknown]
  - Blood count abnormal [Unknown]
  - Swollen tongue [Unknown]
  - Asthenia [Unknown]
